FAERS Safety Report 9701288 (Version 1)
Quarter: 2013Q4

REPORT INFORMATION
  Report Type: Spontaneous
  Country: US (occurrence: US)
  Receive Date: 20131121
  Receipt Date: 20131121
  Transmission Date: 20140711
  Serious: No
  Sender: FDA-Public Use
  Company Number: US-GILEAD-2008-0016358

PATIENT
  Sex: Female

DRUGS (5)
  1. LETAIRIS [Suspect]
     Indication: PULMONARY HYPERTENSION
     Route: 048
     Dates: start: 20071112
  2. TIZANIDINE [Concomitant]
     Dosage: AT NIGHT
     Route: 048
  3. HALOPERIDOL [Concomitant]
     Route: 048
  4. TRAZODONE [Concomitant]
     Dosage: AT NIGHT
     Route: 048
  5. DIAZEPAM [Concomitant]
     Route: 048

REACTIONS (1)
  - Dizziness [Unknown]
